FAERS Safety Report 9403400 (Version 4)
Quarter: 2014Q1

REPORT INFORMATION
  Report Type: Spontaneous
  Country: US (occurrence: US)
  Receive Date: 20130716
  Receipt Date: 20140130
  Transmission Date: 20141002
  Serious: Yes (Hospitalization)
  Sender: FDA-Public Use
  Company Number: US-B.I. PHARMACEUTICALS,INC./RIDGEFIELD-2012-BP-11026BP

PATIENT
  Sex: Male

DRUGS (17)
  1. PRADAXA [Suspect]
     Indication: ATRIAL FIBRILLATION
     Dosage: 300 MG
     Dates: start: 20101115, end: 20111031
  2. PRADAXA [Suspect]
     Indication: ANTICOAGULANT THERAPY
  3. SINGULAIR [Concomitant]
     Dosage: 0.0274 MG
     Route: 048
     Dates: start: 2004, end: 2011
  4. ALBUTEROL [Concomitant]
     Dosage: 8 MG
     Route: 048
     Dates: start: 2004, end: 2011
  5. DILTIAZEM [Concomitant]
     Dosage: 180 MG
     Route: 048
     Dates: start: 2004, end: 2011
  6. PREDNISONE [Concomitant]
     Dosage: 5 MG
     Route: 048
     Dates: start: 2004, end: 2011
  7. PREVACID [Concomitant]
     Dosage: 30 MG
     Route: 048
     Dates: start: 2004, end: 2011
  8. BUMETANIDE [Concomitant]
     Dates: start: 2004, end: 2011
  9. POTASSIUM CHLORIDE [Concomitant]
     Dosage: 20 MEQ
     Route: 048
     Dates: start: 2006, end: 2011
  10. SPIRIVA [Concomitant]
     Dates: start: 2008, end: 2011
  11. MUCINEX [Concomitant]
     Dosage: 2400 MG
     Route: 048
     Dates: start: 2007, end: 2011
  12. METFORMIN HCL [Concomitant]
  13. FLOMAX [Concomitant]
     Dosage: 0.4 MG
     Route: 048
  14. ADVAIR [Concomitant]
     Route: 055
     Dates: start: 2008, end: 2011
  15. OXYGEN [Concomitant]
  16. LIDODERM [Concomitant]
  17. NICOTINE [Concomitant]
     Dosage: 21 MG
     Route: 062

REACTIONS (4)
  - Pulmonary embolism [Unknown]
  - Haemoptysis [Unknown]
  - Epistaxis [Unknown]
  - Gastrointestinal haemorrhage [Unknown]
